FAERS Safety Report 16557301 (Version 2)
Quarter: 2019Q3

REPORT INFORMATION
  Report Type: Spontaneous
  Country: US (occurrence: US)
  Receive Date: 20190711
  Receipt Date: 20190823
  Transmission Date: 20191004
  Serious: Yes (Hospitalization, Other)
  Sender: FDA-Public Use
  Company Number: US-PFIZER INC-2019292601

PATIENT
  Age: 50 Year
  Sex: Female
  Weight: 77 kg

DRUGS (1)
  1. LEVOTHYROXINE SODIUM. [Suspect]
     Active Substance: LEVOTHYROXINE SODIUM
     Indication: HYPOTHYROIDISM
     Dosage: 88 UG, 1X/DAY
     Route: 048
     Dates: start: 201710

REACTIONS (4)
  - Asthenia [Recovered/Resolved]
  - Syncope [Recovered/Resolved]
  - Thyroid disorder [Recovered/Resolved]
  - Adrenal insufficiency [Unknown]

NARRATIVE: CASE EVENT DATE: 2017
